FAERS Safety Report 7678243-3 (Version None)
Quarter: 2011Q3

REPORT INFORMATION
  Report Type: 
  Country: None (occurrence: None)
  Receive Date: 20110811
  Receipt Date: 20110801
  Transmission Date: 20111222
  Serious: Yes (Hospitalization)
  Sender: FDA-Public Use
  Company Number: JP-EISAI INC-E2090-01715-SPO-JP

PATIENT
  Sex: Female

DRUGS (4)
  1. ZONISAMIDE [Suspect]
     Route: 048
     Dates: start: 20110101, end: 20110101
  2. ZONISAMIDE [Suspect]
     Indication: EPILEPSY
     Route: 048
     Dates: end: 20110101
  3. CHEMOTHERAPY DRUG [Concomitant]
  4. ZONISAMIDE [Suspect]
     Route: 048
     Dates: start: 20110101

REACTIONS (4)
  - OVERDOSE [None]
  - PLATELET COUNT DECREASED [None]
  - LIVER FUNCTION TEST ABNORMAL [None]
  - NAUSEA [None]
